FAERS Safety Report 20049894 (Version 1)
Quarter: 2021Q4

REPORT INFORMATION
  Report Type: Report from Study
  Country: KR (occurrence: KR)
  Receive Date: 20211109
  Receipt Date: 20211109
  Transmission Date: 20220303
  Serious: Yes (Death, Other)
  Sender: FDA-Public Use
  Company Number: KR-IPSEN Group, Research and Development-2021-27469

PATIENT

DRUGS (5)
  1. IRINOTECAN HYDROCHLORIDE [Suspect]
     Active Substance: IRINOTECAN HYDROCHLORIDE
     Indication: Biliary neoplasm
     Dosage: 70 MG/M2 OF INTRAVENOUS LIPOSOMAL IRINOTECAN FOR 90 MIN
     Route: 042
  2. LEUCOVORIN [Suspect]
     Active Substance: LEUCOVORIN
     Indication: Biliary neoplasm
     Dosage: FOR 30 MINS
     Route: 042
  3. FLUOROURACIL [Suspect]
     Active Substance: FLUOROURACIL
     Indication: Biliary neoplasm
     Dosage: FOR 46 HOURS
     Route: 042
  4. PALONOSETRON [Concomitant]
     Active Substance: PALONOSETRON
     Indication: Prophylaxis of nausea and vomiting
     Dosage: 30 MIN BEFORE STUDY TREATMENT
     Route: 042
  5. PALONOSETRON [Concomitant]
     Active Substance: PALONOSETRON
     Indication: Prophylaxis of nausea and vomiting

REACTIONS (21)
  - Disease progression [Fatal]
  - Acute kidney injury [Unknown]
  - Fatigue [Unknown]
  - Diarrhoea [Unknown]
  - Neutropenia [Unknown]
  - Febrile neutropenia [Unknown]
  - Thrombocytopenia [Unknown]
  - Pancytopenia [Unknown]
  - Haemorrhage [Unknown]
  - Pneumonia [Unknown]
  - Dyspnoea [Unknown]
  - Decreased appetite [Unknown]
  - Pyrexia [Unknown]
  - Stomatitis [Unknown]
  - Dyspepsia [Unknown]
  - Constipation [Unknown]
  - Abdominal pain [Unknown]
  - Vomiting [Unknown]
  - Nausea [Unknown]
  - Anaemia [Unknown]
  - Asthenia [Unknown]
